FAERS Safety Report 4459185-3 (Version None)
Quarter: 2004Q3

REPORT INFORMATION
  Report Type: 
  Country: None (occurrence: None)
  Receive Date: 20040920
  Receipt Date: 20040920
  Transmission Date: 20050211
  Serious: Yes (Hospitalization)
  Sender: FDA-Public Use
  Company Number: None

PATIENT
  Age: 72 Year
  Sex: Male

DRUGS (3)
  1. GATIFLOXACIN [Suspect]
     Indication: PNEUMONIA
     Dosage: 500 MG ONE TIME IV
     Route: 042
     Dates: start: 20040427, end: 20040427
  2. PAROXETINE ?PRIOR TO ADMIT GLAXOSMITHKLINE [Suspect]
     Indication: DEPRESSION
     Dosage: DAILY ORAL
     Route: 048
     Dates: start: 20040427, end: 20040427
  3. PAXIL [Concomitant]

REACTIONS (4)
  - HYPOXIA [None]
  - SEPSIS [None]
  - TORSADE DE POINTES [None]
  - VENTRICULAR TACHYCARDIA [None]
